FAERS Safety Report 16453757 (Version 2)
Quarter: 2020Q1

REPORT INFORMATION
  Report Type: Spontaneous
  Country: US (occurrence: US)
  Receive Date: 20190619
  Receipt Date: 20200117
  Transmission Date: 20200409
  Serious: Yes (Other)
  Sender: FDA-Public Use
  Company Number: US-ASTRAZENECA-2019SE72915

PATIENT
  Sex: Male

DRUGS (20)
  1. HALDOL DECANOATE [Suspect]
     Active Substance: HALOPERIDOL DECANOATE
     Dosage: 150.0MG UNKNOWN
     Route: 065
  2. FLUOXETINE [Concomitant]
     Active Substance: FLUOXETINE HYDROCHLORIDE
  3. LISINOPRIL. [Concomitant]
     Active Substance: LISINOPRIL
     Indication: HYPERTENSION
     Route: 048
     Dates: start: 20180220
  4. SEROQUEL [Suspect]
     Active Substance: QUETIAPINE FUMARATE
     Route: 048
  5. CLONAZEPAN [Concomitant]
     Active Substance: CLONAZEPAM
     Indication: PSYCHOTIC DISORDER
     Dosage: MILES WAS ON FOR ABOUT TWO TO FOUR YEARS
     Dates: start: 20180225
  6. CITRATE OF MAGNESIUM [Concomitant]
     Active Substance: MAGNESIUM CITRATE
     Dosage: AS NEEDED296.0ML UNKNOWN
     Dates: start: 20180425
  7. HOLDAL [Concomitant]
     Dosage: MILES WAS ON FOR ABOUT TWO TO FOUR YEARS
  8. BENZTOPINE [Concomitant]
     Indication: MOVEMENT DISORDER
     Dosage: MILES WAS ON FOR ABOUT TWO TO FOUR YEARS
     Route: 048
     Dates: start: 20180224
  9. DOCUSATE SODIUM. [Concomitant]
     Active Substance: DOCUSATE SODIUM
     Indication: CONSTIPATION
     Dosage: TWO CAPSULES
     Route: 048
     Dates: start: 20180220
  10. METFORMIN [Concomitant]
     Active Substance: METFORMIN HYDROCHLORIDE
     Indication: DIABETES MELLITUS
     Route: 048
     Dates: start: 20180220
  11. ACETAMINOPHEN. [Concomitant]
     Active Substance: ACETAMINOPHEN
     Dosage: 2 TABLETS 3 TIMES A DAY
     Route: 048
     Dates: start: 20180604
  12. CARDIZEM [Concomitant]
     Active Substance: DILTIAZEM HYDROCHLORIDE
     Indication: BLOOD PRESSURE MEASUREMENT
     Dosage: TWO CAPSULES
     Dates: start: 20180220
  13. BISACODYL. [Concomitant]
     Active Substance: BISACODYL
     Dates: start: 20180220
  14. HALOPERIDOL. [Concomitant]
     Active Substance: HALOPERIDOL
     Indication: HALLUCINATION
     Route: 048
     Dates: start: 20180115
  15. MAGNESIUM HYDROXIDE. [Concomitant]
     Active Substance: MAGNESIUM HYDROXIDE
     Indication: CONSTIPATION
     Dates: start: 20180604
  16. OLANZAPINE. [Concomitant]
     Active Substance: OLANZAPINE
     Indication: PARANOIA
     Dates: start: 20180228
  17. OMEPRAZOLE. [Concomitant]
     Active Substance: OMEPRAZOLE
     Dates: start: 20180220
  18. ALBUTEROL. [Concomitant]
     Active Substance: ALBUTEROL
     Dosage: 2 PUFF 4 TIMES A DAY
     Dates: start: 20180425
  19. FERROUS GLUCONATE [Concomitant]
     Active Substance: FERROUS GLUCONATE
     Indication: RHINITIS
     Dosage: 50 MCG TWO TIMES A DAY
     Dates: start: 20180604
  20. HYDROCHLOROTHIAZIDE. [Concomitant]
     Active Substance: HYDROCHLOROTHIAZIDE
     Indication: PSYCHOTIC DISORDER
     Route: 048
     Dates: start: 20180115

REACTIONS (8)
  - Major depression [Unknown]
  - Mania [Unknown]
  - Anosognosia [Unknown]
  - Emotional distress [Unknown]
  - Anxiety [Unknown]
  - Abnormal behaviour [Unknown]
  - Amnesia [Unknown]
  - Nightmare [Unknown]
